FAERS Safety Report 16904846 (Version 5)
Quarter: 2020Q2

REPORT INFORMATION
  Report Type: Report from Study
  Country: CH (occurrence: CH)
  Receive Date: 20191010
  Receipt Date: 20200407
  Transmission Date: 20200713
  Serious: No
  Sender: FDA-Public Use
  Company Number: CH-BEH-2019103646

PATIENT
  Age: 69 Year
  Sex: Male
  Weight: 84 kg

DRUGS (10)
  1. HIZENTRA [Suspect]
     Active Substance: HUMAN IMMUNOGLOBULIN G
     Dosage: UNK
     Route: 058
     Dates: start: 20190611, end: 20190611
  2. HIZENTRA [Suspect]
     Active Substance: HUMAN IMMUNOGLOBULIN G
     Indication: CHRONIC INFLAMMATORY DEMYELINATING POLYRADICULONEUROPATHY
     Dosage: 85ML/17 GRAM, BIW
     Route: 065
     Dates: start: 20190611
  3. HIZENTRA [Suspect]
     Active Substance: HUMAN IMMUNOGLOBULIN G
     Dosage: 85ML/17 GRAM, TOT
     Route: 065
     Dates: start: 20190614, end: 20190614
  4. HIZENTRA [Suspect]
     Active Substance: HUMAN IMMUNOGLOBULIN G
     Dosage: 85 MILLILITER, 4 SITES OF INJECTION
     Route: 058
  5. HIZENTRA [Suspect]
     Active Substance: HUMAN IMMUNOGLOBULIN G
     Dosage: UNK
     Route: 058
     Dates: start: 20190611, end: 20190611
  6. HIZENTRA [Suspect]
     Active Substance: HUMAN IMMUNOGLOBULIN G
     Dosage: UNK
     Route: 065
     Dates: start: 20190614
  7. HIZENTRA [Suspect]
     Active Substance: HUMAN IMMUNOGLOBULIN G
     Dosage: 85/ML17 GRAM, TOT
     Route: 065
     Dates: start: 20190611, end: 20190611
  8. HIZENTRA [Suspect]
     Active Substance: HUMAN IMMUNOGLOBULIN G
     Dosage: UNK
     Route: 058
     Dates: start: 20190611, end: 20190611
  9. HIZENTRA [Suspect]
     Active Substance: HUMAN IMMUNOGLOBULIN G
     Dosage: 85ML/17 GRAM, TOT
     Route: 065
     Dates: start: 20190617, end: 20190617
  10. HIZENTRA [Suspect]
     Active Substance: HUMAN IMMUNOGLOBULIN G
     Dosage: UNK
     Route: 058
     Dates: start: 20190611, end: 20190611

REACTIONS (17)
  - Injection site infection [Recovered/Resolved]
  - Vertigo [Unknown]
  - Headache [Recovered/Resolved]
  - Inner ear disorder [Unknown]
  - Acne [Unknown]
  - Administration site erythema [Recovered/Resolved]
  - Administration site haematoma [Recovered/Resolved with Sequelae]
  - Administration site swelling [Recovered/Resolved]
  - Administration site erythema [Unknown]
  - Administration site paraesthesia [Recovered/Resolved]
  - Administration site paraesthesia [Unknown]
  - Dyspnoea [Unknown]
  - Dizziness [Unknown]
  - Injection site erythema [Recovered/Resolved]
  - Injection site mass [Recovered/Resolved]
  - Lung disorder [Unknown]
  - Headache [Unknown]

NARRATIVE: CASE EVENT DATE: 2019
